FAERS Safety Report 9402565 (Version 1)
Quarter: 2013Q3

REPORT INFORMATION
  Report Type: Report from Study
  Country: US (occurrence: US)
  Receive Date: 20130716
  Receipt Date: 20130716
  Transmission Date: 20140515
  Serious: Yes (Other)
  Sender: FDA-Public Use
  Company Number: US-ROCHE-1244754

PATIENT
  Age: 78 Year
  Sex: Male

DRUGS (4)
  1. RITUXIMAB [Suspect]
     Indication: CHRONIC LYMPHOCYTIC LEUKAEMIA
     Route: 042
     Dates: start: 20120510
  2. RITUXIMAB [Suspect]
     Route: 042
     Dates: start: 20120524, end: 20120927
  3. BLINDED CAL-101 (PI3K DELTA INHIBITOR) [Suspect]
     Indication: CHRONIC LYMPHOCYTIC LEUKAEMIA
     Dosage: LAST DOSE PRIOR TO SAE ON 27/SEP/2012
     Route: 048
     Dates: start: 20120510
  4. BLINDED CAL-101 (PI3K DELTA INHIBITOR) [Suspect]
     Route: 048
     Dates: start: 20130116, end: 20130123

REACTIONS (1)
  - Salivary gland cancer [Not Recovered/Not Resolved]
